FAERS Safety Report 19838594 (Version 1)
Quarter: 2021Q3

REPORT INFORMATION
  Report Type: Spontaneous
  Country: US (occurrence: US)
  Receive Date: 20210915
  Receipt Date: 20210915
  Transmission Date: 20211014
  Serious: Yes (Death)
  Sender: FDA-Public Use
  Company Number: None

PATIENT
  Age: 78 Year
  Sex: Male

DRUGS (1)
  1. HALOPERIDOL. [Suspect]
     Active Substance: HALOPERIDOL
     Route: 040

REACTIONS (10)
  - Sudden cardiac death [None]
  - Hyponatraemia [None]
  - Electrocardiogram QT prolonged [None]
  - Haematemesis [None]
  - Oxygen saturation decreased [None]
  - Forearm fracture [None]
  - Fall [None]
  - Cardio-respiratory arrest [None]
  - Cardiac arrest [None]
  - Heart rate decreased [None]

NARRATIVE: CASE EVENT DATE: 20210504
